FAERS Safety Report 7602616-8 (Version None)
Quarter: 2011Q3

REPORT INFORMATION
  Report Type: 
  Country: None (occurrence: None)
  Receive Date: 20110712
  Receipt Date: 20110706
  Transmission Date: 20111222
  Serious: Yes (Life-Threatening)
  Sender: FDA-Public Use
  Company Number: JP-CELGENEUS-087-21880-10123076

PATIENT
  Sex: Female

DRUGS (7)
  1. SUNRYTHM [Concomitant]
     Indication: ATRIAL FIBRILLATION
     Dosage: 100 MILLIGRAM
     Route: 048
     Dates: start: 20101029
  2. ITRACONAZOLE [Concomitant]
     Indication: PROPHYLAXIS
     Dosage: 20 MILLIGRAM
     Route: 048
     Dates: start: 20101029
  3. REVLIMID [Suspect]
     Dosage: 10 MILLIGRAM
     Route: 048
     Dates: start: 20101105, end: 20101109
  4. REVLIMID [Suspect]
     Indication: MULTIPLE MYELOMA
     Dosage: 15 MILLIGRAM
     Route: 048
     Dates: start: 20101029, end: 20101104
  5. DEXAMETHASONE [Suspect]
     Indication: MULTIPLE MYELOMA
     Dosage: 4 MILLIGRAM
     Route: 048
     Dates: start: 20101029, end: 20101204
  6. LANSOPRAZOLE [Concomitant]
     Indication: PROPHYLAXIS
     Dosage: 15 MILLIGRAM
     Route: 048
     Dates: start: 20100101
  7. ETODOLAC [Concomitant]
     Indication: ILL-DEFINED DISORDER
     Dosage: 400 MILLIGRAM
     Route: 048
     Dates: start: 20101029

REACTIONS (2)
  - NEUTROPENIA [None]
  - THROMBOCYTOPENIA [None]
